FAERS Safety Report 14617493 (Version 3)
Quarter: 2018Q3

REPORT INFORMATION
  Report Type: Report from Study
  Country: CZ (occurrence: CZ)
  Receive Date: 20180309
  Receipt Date: 20180706
  Transmission Date: 20181010
  Serious: Yes (Other)
  Sender: FDA-Public Use
  Company Number: CZ-JNJFOC-20180302945

PATIENT
  Age: 52 Year
  Sex: Female

DRUGS (1)
  1. SIMPONI [Suspect]
     Active Substance: GOLIMUMAB
     Indication: PSORIATIC ARTHROPATHY
     Route: 058
     Dates: start: 20171130, end: 20180301

REACTIONS (2)
  - Drug ineffective [Unknown]
  - Borrelia infection [Not Recovered/Not Resolved]

NARRATIVE: CASE EVENT DATE: 20171130
